FAERS Safety Report 7622382-X (Version None)
Quarter: 2011Q3

REPORT INFORMATION
  Report Type: 
  Country: None (occurrence: None)
  Receive Date: 20110718
  Receipt Date: 20110718
  Transmission Date: 20111222
  Serious: Yes (Other)
  Sender: FDA-Public Use
  Company Number: None

PATIENT
  Age: 61 Year
  Sex: Male

DRUGS (3)
  1. NPLATE [Suspect]
     Indication: AUTOIMMUNE THROMBOCYTOPENIA
     Dosage: 15MG 1KG SC WEEKLY SC
     Route: 058
     Dates: start: 20110515
  2. PREDNISONE TAB [Concomitant]
  3. NPLATE [Suspect]

REACTIONS (2)
  - BLAST CELLS PRESENT [None]
  - RED BLOOD CELL NUCLEATED MORPHOLOGY PRESENT [None]
